FAERS Safety Report 8130154-5 (Version None)
Quarter: 2012Q1

REPORT INFORMATION
  Report Type: 
  Country: None (occurrence: None)
  Receive Date: 20120210
  Receipt Date: 20120203
  Transmission Date: 20120608
  Serious: Yes (Other)
  Sender: FDA-Public Use
  Company Number: US-CELGENEUS-163-21880-12020557

PATIENT
  Sex: Male

DRUGS (4)
  1. CALCIUM 600 [Concomitant]
     Route: 065
  2. REVLIMID [Suspect]
     Dosage: 25 MILLIGRAM
     Route: 048
     Dates: start: 20111121
  3. FISH OIL [Concomitant]
     Route: 065
  4. MULTI-VITAMINS [Concomitant]
     Route: 065

REACTIONS (1)
  - HAEMATOCHEZIA [None]
